FAERS Safety Report 5795497-9 (Version None)
Quarter: 2008Q2

REPORT INFORMATION
  Report Type: 
  Country: None (occurrence: None)
  Receive Date: 20080630
  Receipt Date: 20080620
  Transmission Date: 20081010
  Serious: Yes (Hospitalization)
  Sender: FDA-Public Use
  Company Number: US-BAYER-200825002NA

PATIENT
  Age: 27 Year
  Sex: Male
  Weight: 40 kg

DRUGS (31)
  1. CAMPATH [Suspect]
     Indication: ACUTE LYMPHOCYTIC LEUKAEMIA
     Dosage: AS USED: 5 MG
     Route: 058
     Dates: start: 20080407
  2. METHOTREXATE [Suspect]
     Indication: ACUTE LYMPHOCYTIC LEUKAEMIA
     Dosage: AS USED: 100 MG/M2
     Route: 042
     Dates: start: 20080407, end: 20080428
  3. METHOTREXATE [Suspect]
     Route: 042
     Dates: start: 20080509
  4. VINCRISTINE [Suspect]
     Indication: ACUTE LYMPHOCYTIC LEUKAEMIA
     Route: 040
     Dates: start: 20080510
  5. VINCRISTINE [Suspect]
     Dosage: AS USED: 2 MG
     Route: 040
     Dates: start: 20080408, end: 20080429
  6. ELSPAR [Suspect]
     Indication: ACUTE LYMPHOCYTIC LEUKAEMIA
     Route: 030
     Dates: start: 20080510
  7. ELSPAR [Suspect]
     Dosage: AS USED: 500 IU/KG
     Route: 030
     Dates: start: 20080408, end: 20080429
  8. DEXAMETHASONE [Suspect]
     Indication: ACUTE LYMPHOCYTIC LEUKAEMIA
     Dosage: TOTAL DAILY DOSE: 6 MG/M2
     Route: 048
     Dates: start: 20080407, end: 20080507
  9. DEXAMETHASONE [Suspect]
     Route: 048
     Dates: start: 20080518
  10. LEVAQUIN [Concomitant]
  11. SUDAFED 12 HOUR [Concomitant]
     Dosage: TOTAL DAILY DOSE: 120 MG
  12. VALTREX [Concomitant]
     Dosage: TOTAL DAILY DOSE: 500 MG
  13. AMBIEN [Concomitant]
     Dosage: TOTAL DAILY DOSE: 10 MG
  14. JENUVIA [Concomitant]
  15. KLONOPIN [Concomitant]
     Dosage: TOTAL DAILY DOSE: 3 MG
  16. LANTUS [Concomitant]
     Dosage: TOTAL DAILY DOSE: 10 U
  17. LIDOCAINE HCL VISCOUS [Concomitant]
     Route: 048
  18. NEURONTIN [Concomitant]
     Dosage: TOTAL DAILY DOSE: 900 MG
  19. NEXIUM [Concomitant]
     Dosage: TOTAL DAILY DOSE: 80 MG
  20. NYSTATIN [Concomitant]
  21. OXY-CR [Concomitant]
     Dosage: TOTAL DAILY DOSE: 80 MG
  22. OXYCODONE IMMEDIATE RELEASE [Concomitant]
     Indication: PAIN
  23. SOTALOL HCL [Concomitant]
     Dosage: TOTAL DAILY DOSE: 50 MG
  24. ZOFRAN [Concomitant]
     Indication: NAUSEA
  25. BACTRIM DS [Concomitant]
  26. LISPRO [Concomitant]
  27. ATIVAN [Concomitant]
     Indication: ANXIETY
  28. CHLORHEXIDINE GLUCONATE [Concomitant]
     Dosage: TOTAL DAILY DOSE: 30 ML
     Route: 048
  29. IMODIUM [Concomitant]
     Indication: DIARRHOEA
  30. PHENERGAN HCL [Concomitant]
     Indication: NAUSEA
  31. DEXAMETHASONE [Concomitant]

REACTIONS (5)
  - DYSPHAGIA [None]
  - PNEUMONITIS [None]
  - POOR DENTAL CONDITION [None]
  - PYREXIA [None]
  - STOMATITIS [None]
